FAERS Safety Report 5302014-6 (Version None)
Quarter: 2007Q2

REPORT INFORMATION
  Report Type: 
  Country: None (occurrence: None)
  Receive Date: 20070416
  Receipt Date: 20070416
  Transmission Date: 20071010
  Serious: Yes (Death)
  Sender: FDA-Public Use
  Company Number: None

PATIENT
  Age: 81 Year
  Sex: Male
  Weight: 79.3795 kg

DRUGS (1)
  1. UROCTAL 400MG ALMIRALL PRODESFERMA [Suspect]
     Indication: INCONTINENCE
     Dosage: 400MG   1   PO
     Route: 048
     Dates: start: 20070402, end: 20070402

REACTIONS (2)
  - CARDIAC FAILURE [None]
  - RESPIRATORY FAILURE [None]
